FAERS Safety Report 16820415 (Version 1)
Quarter: 2019Q3

REPORT INFORMATION
  Report Type: Spontaneous
  Country: US (occurrence: US)
  Receive Date: 20190918
  Receipt Date: 20190918
  Transmission Date: 20191005
  Serious: Yes (Hospitalization, Other)
  Sender: FDA-Public Use
  Company Number: US-ZYDUS-040693

PATIENT
  Age: 18 Year
  Sex: Female

DRUGS (1)
  1. NAPROXEN. [Suspect]
     Active Substance: NAPROXEN
     Indication: PRODUCT USED FOR UNKNOWN INDICATION
     Dosage: INGESTED THREE TO FIVE TABLETS
     Route: 048

REACTIONS (8)
  - Mental status changes [Recovered/Resolved]
  - Intentional overdose [Unknown]
  - Blood pressure decreased [Recovered/Resolved]
  - Unresponsive to stimuli [Recovered/Resolved]
  - Metabolic acidosis [Recovered/Resolved]
  - Depressed level of consciousness [Recovered/Resolved]
  - Intentional self-injury [Unknown]
  - Leukocytosis [Recovered/Resolved]
